FAERS Safety Report 13004223 (Version 2)
Quarter: 2016Q4

REPORT INFORMATION
  Report Type: Report from Study
  Country: US (occurrence: US)
  Receive Date: 20161206
  Receipt Date: 20161207
  Transmission Date: 20170207
  Serious: Yes (Other)
  Sender: FDA-Public Use
  Company Number: US-009507513-1611USA009236

PATIENT
  Age: 33 Year
  Sex: Male

DRUGS (1)
  1. PEMBROLIZUMAB. [Suspect]
     Active Substance: PEMBROLIZUMAB

REACTIONS (4)
  - Chemotherapy [Unknown]
  - Pain [Unknown]
  - Speech disorder [Unknown]
  - Lethargy [Unknown]

NARRATIVE: CASE EVENT DATE: 2016
